FAERS Safety Report 24189349 (Version 1)
Quarter: 2024Q3

REPORT INFORMATION
  Report Type: Other
  Country: CA (occurrence: CA)
  Receive Date: 20240808
  Receipt Date: 20240808
  Transmission Date: 20241017
  Serious: Yes (Death, Other)
  Sender: PFIZER
  Company Number: CA-PFIZER INC-202400231338

PATIENT

DRUGS (2)
  1. DOCETAXEL [Suspect]
     Active Substance: DOCETAXEL\DOCETAXEL ANHYDROUS
     Indication: Small cell lung cancer
     Dosage: 100 MG/M2
     Route: 042
  2. DOCETAXEL [Suspect]
     Active Substance: DOCETAXEL\DOCETAXEL ANHYDROUS
     Dosage: 75 MG/M2
     Route: 065

REACTIONS (22)
  - Anaemia [Fatal]
  - Asthenia [Fatal]
  - Cardiotoxicity [Fatal]
  - Diarrhoea [Fatal]
  - Febrile neutropenia [Fatal]
  - Fluid retention [Fatal]
  - Hypertension [Fatal]
  - Hypotension [Fatal]
  - Infection [Fatal]
  - Nausea [Fatal]
  - Neurosensory hypoacusis [Fatal]
  - Neurotoxicity [Fatal]
  - Pneumonia [Fatal]
  - Pulmonary toxicity [Fatal]
  - Pyrexia [Fatal]
  - Neoplasm progression [Fatal]
  - Stomatitis [Fatal]
  - Thrombocytopenia [Fatal]
  - Toxicity to various agents [Fatal]
  - Vomiting [Fatal]
  - Weight decreased [Fatal]
  - Off label use [Unknown]
